FAERS Safety Report 9868951 (Version 7)
Quarter: 2017Q1

REPORT INFORMATION
  Report Type: Report from Study
  Country: CA (occurrence: CA)
  Receive Date: 20140205
  Receipt Date: 20170119
  Transmission Date: 20170429
  Serious: Yes (Other)
  Sender: FDA-Public Use
  Company Number: CA-ROCHE-1125368

PATIENT
  Age: 50 Year
  Sex: Female
  Weight: 52.21 kg

DRUGS (18)
  1. RITUXAN [Suspect]
     Active Substance: RITUXIMAB
     Indication: MICROSCOPIC POLYANGIITIS
     Dosage: DATE OF LAST RECEIVED DOSE OF RITUXIMAB: 01/OCT/2012
     Route: 042
     Dates: start: 20120910
  2. METHOTREXATE. [Concomitant]
     Active Substance: METHOTREXATE
     Dosage: METHOTREXATE DOSE INCREASED AFTER FEB/2014
     Route: 065
  3. OMEGA 9 [Concomitant]
  4. BENADRYL [Concomitant]
     Active Substance: DIPHENHYDRAMINE HYDROCHLORIDE
     Route: 048
     Dates: start: 20120913
  5. SOLU-MEDROL [Concomitant]
     Active Substance: METHYLPREDNISOLONE SODIUM SUCCINATE
     Route: 042
     Dates: start: 20120913
  6. SOLU-MEDROL [Concomitant]
     Active Substance: METHYLPREDNISOLONE SODIUM SUCCINATE
     Dosage: ONCE
     Route: 042
     Dates: start: 20120910
  7. BENADRYL [Concomitant]
     Active Substance: DIPHENHYDRAMINE HYDROCHLORIDE
     Dosage: ONCE
     Route: 048
     Dates: start: 20120910
  8. VITAMIN B12 [Concomitant]
     Active Substance: CYANOCOBALAMIN
  9. FOLIC ACID. [Concomitant]
     Active Substance: FOLIC ACID
  10. RITUXAN [Suspect]
     Active Substance: RITUXIMAB
     Route: 042
     Dates: start: 20140407
  11. TYLENOL [Concomitant]
     Active Substance: ACETAMINOPHEN
     Dosage: ONCE
     Route: 048
     Dates: start: 20120910
  12. RITUXAN [Suspect]
     Active Substance: RITUXIMAB
     Route: 042
     Dates: start: 20120913
  13. SYMBICORT [Concomitant]
     Active Substance: BUDESONIDE\FORMOTEROL FUMARATE DIHYDRATE
  14. PREDNISONE. [Concomitant]
     Active Substance: PREDNISONE
  15. BACLOFEN. [Concomitant]
     Active Substance: BACLOFEN
  16. BETAHISTINE [Concomitant]
     Active Substance: BETAHISTINE
  17. OMEGA 3 [Concomitant]
     Active Substance: OMEGA-3 FATTY ACIDS
  18. TYLENOL [Concomitant]
     Active Substance: ACETAMINOPHEN
     Route: 048
     Dates: start: 20120913

REACTIONS (18)
  - Pain in jaw [Recovered/Resolved]
  - Pain in extremity [Unknown]
  - Blood pressure increased [Unknown]
  - Anxiety [Unknown]
  - Somnolence [Unknown]
  - Dyspnoea [Not Recovered/Not Resolved]
  - Presyncope [Recovered/Resolved]
  - Off label use [Unknown]
  - Heart rate increased [Unknown]
  - Hypokinesia [Unknown]
  - Pain in extremity [Recovered/Resolved]
  - Fatigue [Unknown]
  - Haemorrhage [Unknown]
  - Sinusitis [Not Recovered/Not Resolved]
  - Vulvovaginal dryness [Not Recovered/Not Resolved]
  - Neck pain [Not Recovered/Not Resolved]
  - Arthralgia [Unknown]
  - Sinus disorder [Unknown]

NARRATIVE: CASE EVENT DATE: 20120914
